FAERS Safety Report 4274621-3 (Version None)
Quarter: 2004Q1

REPORT INFORMATION
  Report Type: 
  Country: None (occurrence: None)
  Receive Date: 20040115
  Receipt Date: 20040107
  Transmission Date: 20041129
  Serious: Yes (Hospitalization)
  Sender: FDA-Public Use
  Company Number: 2003123781

PATIENT
  Age: 64 Year
  Sex: Female

DRUGS (1)
  1. ATORVASTATIN (ATORVASTATIN) [Suspect]
     Indication: DYSLIPIDAEMIA
     Dosage: 10 MG DAILY ORAL
     Route: 048
     Dates: start: 19991001

REACTIONS (5)
  - ABDOMINAL PAIN [None]
  - OBSTRUCTIVE UROPATHY [None]
  - POST PROCEDURAL COMPLICATION [None]
  - URINARY RETENTION [None]
  - VAGINAL HAEMORRHAGE [None]
